FAERS Safety Report 7766493 (Version 2)
Quarter: 2012Q4

REPORT INFORMATION
  Report Type: 
  Country: GR (occurrence: GR)
  Receive Date: 20110120
  Receipt Date: 20120926
  Transmission Date: 20130627
  Serious: Yes (Other)
  Sender: FDA-Public Use
  Company Number: GR-RANBAXY-2010R1-40238

PATIENT
  Age: 49 Year
  Sex: Female

DRUGS (3)
  1. BENSERAZIDE HYDROCHLORIDE\LEVODOPA [Suspect]
     Indication: PARKINSON^S DISEASE
     Dosage: UNK
     Route: 065
  2. ROPINIROLE [Suspect]
     Indication: PARKINSON^S DISEASE
     Dosage: UNK
     Route: 065
  3. SELEGILINE [Suspect]
     Indication: PARKINSON^S DISEASE
     Dosage: UNK
     Route: 065

REACTIONS (1)
  - Delusional disorder, persecutory type [Recovered/Resolved]
